FAERS Safety Report 13644682 (Version 1)
Quarter: 2017Q2

REPORT INFORMATION
  Report Type: Spontaneous
  Country: US (occurrence: US)
  Receive Date: 20170612
  Receipt Date: 20170612
  Transmission Date: 20170830
  Serious: No
  Sender: FDA-Public Use
  Company Number: US-ROCHE-1302019

PATIENT
  Age: 73 Year
  Sex: Female

DRUGS (4)
  1. XELODA [Suspect]
     Active Substance: CAPECITABINE
     Dosage: 3 TABS TWICE DAILY FOR 14 DAYS ON AND 7 DAYS OFF
     Route: 048
     Dates: start: 20130725
  2. XELODA [Suspect]
     Active Substance: CAPECITABINE
     Indication: BREAST CANCER
     Route: 048
     Dates: start: 20130301
  3. XELODA [Suspect]
     Active Substance: CAPECITABINE
     Dosage: 3 TABLET TWICE A DAY FOR 14 DAYS ON AND 7 DAYS OFF
     Route: 048
     Dates: start: 20130501
  4. XELODA [Suspect]
     Active Substance: CAPECITABINE
     Dosage: 4 TABLET TWICE DAILY FOR 14 DAYS ON AND 7 DAYS OFF
     Route: 048
     Dates: start: 20130430

REACTIONS (3)
  - Headache [Unknown]
  - Dry skin [Unknown]
  - Skin fissures [Unknown]

NARRATIVE: CASE EVENT DATE: 20140113
